FAERS Safety Report 16419154 (Version 2)
Quarter: 2020Q1

REPORT INFORMATION
  Report Type: Report from Study
  Country: None (occurrence: US)
  Receive Date: 20190612
  Receipt Date: 20200207
  Transmission Date: 20200409
  Serious: Yes (Other)
  Sender: FDA-Public Use
  Company Number: US-ABBVIE-18K-163-2376273-00

PATIENT
  Sex: Female
  Weight: 90.8 kg

DRUGS (3)
  1. HUMIRA [Suspect]
     Active Substance: ADALIMUMAB
     Route: 058
  2. HUMIRA [Suspect]
     Active Substance: ADALIMUMAB
     Indication: RHEUMATOID ARTHRITIS
     Dosage: CITRATE FREE
     Route: 058
  3. HUMIRA [Suspect]
     Active Substance: ADALIMUMAB
     Indication: ANKYLOSING SPONDYLITIS
     Dosage: CITRATE FREE
     Route: 058

REACTIONS (9)
  - Hepatic enzyme abnormal [Unknown]
  - Injection site pain [Unknown]
  - Thyroid disorder [Unknown]
  - Condition aggravated [Unknown]
  - Spinal disorder [Unknown]
  - Herpes zoster disseminated [Unknown]
  - Malaise [Unknown]
  - Hypersensitivity [Unknown]
  - Viral sinusitis [Unknown]
